FAERS Safety Report 4622251-3 (Version None)
Quarter: 2005Q1

REPORT INFORMATION
  Report Type: 
  Country: None (occurrence: None)
  Receive Date: 20050322
  Receipt Date: 20050322
  Transmission Date: 20050727
  Serious: No
  Sender: FDA-Public Use
  Company Number: None

PATIENT
  Age: 11 Year
  Sex: Female
  Weight: 34.0198 kg

DRUGS (8)
  1. ALLERGY EXTRACT   GREER LABORATORIES [Suspect]
     Indication: ASTHMA
     Dosage: INJECTIONS TWICE WEEKLY SQ
     Route: 058
     Dates: start: 20041213, end: 20050322
  2. ALLERGY EXTRACT   GREER LABORATORIES [Suspect]
     Indication: RHINITIS ALLERGIC
     Dosage: INJECTIONS TWICE WEEKLY SQ
     Route: 058
     Dates: start: 20041213, end: 20050322
  3. PULMICORT [Concomitant]
  4. FORADIL [Concomitant]
  5. CLARINEX [Concomitant]
  6. RHINOCORT [Concomitant]
  7. XOPENEX [Concomitant]
  8. TAMIFLU [Concomitant]

REACTIONS (1)
  - JOINT EFFUSION [None]
